FAERS Safety Report 19475841 (Version 1)
Quarter: 2021Q2

REPORT INFORMATION
  Report Type: Spontaneous
  Country: GB (occurrence: GB)
  Receive Date: 20210630
  Receipt Date: 20210630
  Transmission Date: 20210717
  Serious: Yes (Other)
  Sender: FDA-Public Use
  Company Number: GB-TEVA-2021-GB-1926948

PATIENT
  Age: 27 Year
  Sex: Male
  Weight: 120.65 kg

DRUGS (7)
  1. BACLOFEN. [Concomitant]
     Active Substance: BACLOFEN
  2. SALBUTAMOL [Concomitant]
     Active Substance: ALBUTEROL
  3. FOSTAIR [Concomitant]
     Active Substance: BECLOMETHASONE\FORMOTEROL
  4. LINACLOTIDE [Concomitant]
     Active Substance: LINACLOTIDE
  5. BUTRANS [Concomitant]
     Active Substance: BUPRENORPHINE
     Route: 062
  6. FEXOFENADINE [Concomitant]
     Active Substance: FEXOFENADINE HYDROCHLORIDE
  7. VENLAFAXINE [Suspect]
     Active Substance: VENLAFAXINE HYDROCHLORIDE
     Indication: MAJOR DEPRESSION
     Dosage: 150 MILLIGRAM DAILY;
     Route: 048
     Dates: start: 20210308, end: 20210621

REACTIONS (7)
  - Constipation [Not Recovered/Not Resolved]
  - Anger [Unknown]
  - Tremor [Unknown]
  - Depersonalisation/derealisation disorder [Unknown]
  - Depressed mood [Unknown]
  - Condition aggravated [Unknown]
  - Depression [Unknown]

NARRATIVE: CASE EVENT DATE: 20210317
